FAERS Safety Report 6035511-9 (Version None)
Quarter: 2009Q1

REPORT INFORMATION
  Report Type: 
  Country: None (occurrence: None)
  Receive Date: 20090112
  Receipt Date: 20090112
  Transmission Date: 20090719
  Serious: No
  Sender: FDA-Public Use
  Company Number: None

PATIENT
  Sex: Female
  Weight: 78.18 kg

DRUGS (11)
  1. NEURONTIN [Suspect]
     Dosage: 100MG CAPSULE 100 MG TID
     Route: 048
     Dates: start: 20081030, end: 20090111
  2. AMBIEN [Concomitant]
  3. ASPIRIN [Concomitant]
  4. CYMBALTA [Concomitant]
  5. DIAZEPAM [Concomitant]
  6. FLUNISOLIDE NASAL [Concomitant]
  7. IBUPROFEN [Concomitant]
  8. METFORMIN [Concomitant]
  9. OMEPRAZOLE [Concomitant]
  10. OXYCODONE HCL [Concomitant]
  11. VICODIN (HYDROCODONE + APAP) [Concomitant]

REACTIONS (1)
  - ANGIOEDEMA [None]
